FAERS Safety Report 5716346-0 (Version None)
Quarter: 2008Q2

REPORT INFORMATION
  Report Type: 
  Country: None (occurrence: None)
  Receive Date: 20080424
  Receipt Date: 20080422
  Transmission Date: 20081010
  Serious: Yes (Hospitalization, Disabling, Other)
  Sender: FDA-Public Use
  Company Number: FR-BRISTOL-MYERS SQUIBB COMPANY-14161467

PATIENT
  Age: 42 Year
  Sex: Female

DRUGS (5)
  1. BICNU PWDR FOR INJ [Suspect]
     Indication: NEOPLASM
     Route: 042
     Dates: start: 20060114
  2. TEMODAL [Suspect]
     Indication: NEOPLASM
     Route: 042
     Dates: start: 20060120
  3. LAMICTAL [Concomitant]
  4. KEPPRA [Concomitant]
  5. TRILEPTAL [Concomitant]
     Dates: end: 20080213

REACTIONS (1)
  - ACUTE LEUKAEMIA [None]
